FAERS Safety Report 7010332-9 (Version None)
Quarter: 2010Q3

REPORT INFORMATION
  Report Type: 
  Country: None (occurrence: None)
  Receive Date: 20100923
  Receipt Date: 20100915
  Transmission Date: 20110219
  Serious: Yes (Other)
  Sender: FDA-Public Use
  Company Number: B0675724A

PATIENT
  Sex: Female
  Weight: 58 kg

DRUGS (4)
  1. TYKERB [Suspect]
     Indication: BREAST CANCER
     Dosage: 1250MG PER DAY
     Route: 048
     Dates: start: 20091007, end: 20100614
  2. XELODA [Concomitant]
     Dosage: 2400MG PER DAY
     Route: 048
     Dates: start: 20091007, end: 20091013
  3. DEPAS [Concomitant]
     Indication: ANXIETY DISORDER
     Route: 048
  4. PYDOXAL [Concomitant]
     Route: 048
     Dates: start: 20091007, end: 20091013

REACTIONS (3)
  - PSEUDOMEMBRANOUS COLITIS [None]
  - PYREXIA [None]
  - RECTAL HAEMORRHAGE [None]
